FAERS Safety Report 9702460 (Version 1)
Quarter: 2013Q4

REPORT INFORMATION
  Report Type: Spontaneous
  Country: US (occurrence: US)
  Receive Date: 20131121
  Receipt Date: 20131121
  Transmission Date: 20140711
  Serious: No
  Sender: FDA-Public Use
  Company Number: US-PFIZER INC-2013333794

PATIENT
  Sex: Male

DRUGS (1)
  1. QUILLIVANT XR [Suspect]
     Indication: DISTURBANCE IN ATTENTION
     Dosage: UNKNOWN DOSE, FIVE DAYS A WEEK
     Dates: start: 201311

REACTIONS (5)
  - Drug ineffective [Unknown]
  - Malaise [Unknown]
  - Feeling abnormal [Unknown]
  - Nervousness [Unknown]
  - Somnolence [Unknown]
